FAERS Safety Report 7372669-3 (Version None)
Quarter: 2011Q1

REPORT INFORMATION
  Report Type: 
  Country: None (occurrence: None)
  Receive Date: 20110324
  Receipt Date: 20101213
  Transmission Date: 20110831
  Serious: Yes (Other)
  Sender: FDA-Public Use
  Company Number: US-BAYER-2011-024881

PATIENT
  Sex: Female
  Weight: 54.422 kg

DRUGS (2)
  1. YAZ [Suspect]
     Indication: CONTRACEPTION
     Dosage: UNK
     Route: 048
     Dates: start: 20020101, end: 20080101
  2. YASMIN [Suspect]
     Indication: CONTRACEPTION
     Dosage: UNK
     Route: 048
     Dates: start: 20020101, end: 20080101

REACTIONS (4)
  - BILIARY DYSKINESIA [None]
  - NAUSEA [None]
  - ABDOMINAL PAIN UPPER [None]
  - DIARRHOEA [None]
